FAERS Safety Report 6342541-6 (Version None)
Quarter: 2009Q3

REPORT INFORMATION
  Report Type: 
  Country: None (occurrence: None)
  Receive Date: 20090908
  Receipt Date: 20090827
  Transmission Date: 20100115
  Serious: Yes (Other)
  Sender: FDA-Public Use
  Company Number: BE-JNJFOC-20090900512

PATIENT
  Sex: Female
  Weight: 80 kg

DRUGS (12)
  1. REMICADE [Suspect]
     Indication: PSORIASIS
     Route: 042
  2. LEVOTHYROXINE SODIUM [Concomitant]
  3. ALPRAZOLAM [Concomitant]
  4. FELDENE [Concomitant]
  5. METFORMIN HCL [Concomitant]
  6. CRESTOR [Concomitant]
  7. ATENOLOL [Concomitant]
  8. ALL OTHER THERAPEUTIC PRODUCTS [Concomitant]
  9. ALL OTHER THERAPEUTIC PRODUCTS [Concomitant]
  10. ALL OTHER THERAPEUTIC PRODUCTS [Concomitant]
  11. TEGRETOL [Concomitant]
  12. RIVATRIL [Concomitant]

REACTIONS (2)
  - GRAND MAL CONVULSION [None]
  - PETIT MAL EPILEPSY [None]
